FAERS Safety Report 7311606-4 (Version None)
Quarter: 2011Q1

REPORT INFORMATION
  Report Type: 
  Country: None (occurrence: None)
  Receive Date: 20110224
  Receipt Date: 20110217
  Transmission Date: 20110831
  Serious: Yes (Death, Hospitalization, Other)
  Sender: FDA-Public Use
  Company Number: JP-CELGENEUS-087-21880-10120748

PATIENT
  Sex: Male
  Weight: 57.1 kg

DRUGS (11)
  1. BAKTAR [Concomitant]
     Indication: PROPHYLAXIS
     Route: 048
     Dates: start: 20101021
  2. SELBEX [Concomitant]
     Indication: PROPHYLAXIS
     Route: 048
     Dates: start: 20101021, end: 20101210
  3. LENADEX [Suspect]
     Indication: MULTIPLE MYELOMA
     Route: 048
     Dates: start: 20101106, end: 20101125
  4. LOXONIN [Concomitant]
     Indication: MULTIPLE MYELOMA
     Route: 048
     Dates: start: 20101021, end: 20101210
  5. LENADEX [Suspect]
     Route: 048
     Dates: start: 20101126, end: 20101210
  6. REVLIMID [Suspect]
     Indication: MULTIPLE MYELOMA
     Route: 048
     Dates: start: 20101106, end: 20101210
  7. GASTER [Concomitant]
     Indication: PROPHYLAXIS
     Route: 048
     Dates: start: 20101021, end: 20101210
  8. MYONAL [Concomitant]
     Indication: PROPHYLAXIS
     Route: 048
     Dates: start: 20101021, end: 20101210
  9. MAGMITT [Concomitant]
     Indication: CONSTIPATION
     Route: 048
     Dates: start: 20101021, end: 20101210
  10. BAKTAR [Concomitant]
     Route: 048
     Dates: end: 20101210
  11. FLUCONAZOLE [Concomitant]
     Indication: PROPHYLAXIS
     Route: 048
     Dates: start: 20101021, end: 20101210

REACTIONS (9)
  - PULMONARY EMBOLISM [None]
  - ASPARTATE AMINOTRANSFERASE INCREASED [None]
  - DEEP VEIN THROMBOSIS [None]
  - RASH [None]
  - SEPSIS [None]
  - ALANINE AMINOTRANSFERASE INCREASED [None]
  - DRUG ERUPTION [None]
  - PLATELET COUNT DECREASED [None]
  - LIVER DISORDER [None]
